FAERS Safety Report 9657953 (Version 2)
Quarter: 2014Q4

REPORT INFORMATION
  Report Type: Spontaneous
  Country: JP (occurrence: None)
  Receive Date: 20131029
  Receipt Date: 20131104
  Transmission Date: 20150529
  Serious: Yes (Other)
  Sender: FDA-Public Use
  Company Number: VAL_02785_2013

PATIENT
  Age: 34 Year
  Sex: Female

DRUGS (1)
  1. METHERGINE [Suspect]
     Active Substance: METHYLERGONOVINE MALEATE
     Indication: POST ABORTION HAEMORRHAGE
     Route: 048

REACTIONS (2)
  - No therapeutic response [None]
  - Uterine haemorrhage [None]
